FAERS Safety Report 9971417 (Version 1)
Quarter: 2014Q1

REPORT INFORMATION
  Report Type: Report from Study
  Country: US (occurrence: US)
  Receive Date: 20140306
  Receipt Date: 20140306
  Transmission Date: 20141002
  Serious: No
  Sender: FDA-Public Use
  Company Number: US-ABBVIE-13P-163-1150889-00

PATIENT
  Age: 43 Year
  Sex: Female
  Weight: 55.84 kg

DRUGS (3)
  1. HUMIRA [Suspect]
     Indication: CROHN^S DISEASE
     Route: 058
     Dates: end: 201308
  2. HUMIRA [Suspect]
     Indication: PSORIASIS
  3. CITALOPRAM [Concomitant]
     Indication: DEPRESSION

REACTIONS (3)
  - Weight decreased [Not Recovered/Not Resolved]
  - Rectal haemorrhage [Not Recovered/Not Resolved]
  - Psoriasis [Not Recovered/Not Resolved]
